FAERS Safety Report 9343712 (Version 2)
Quarter: 2013Q3

REPORT INFORMATION
  Report Type: Report from Study
  Country: JP (occurrence: JP)
  Receive Date: 20130612
  Receipt Date: 20130731
  Transmission Date: 20140515
  Serious: Yes (Hospitalization, Other)
  Sender: FDA-Public Use
  Company Number: PHHY2013JP059110

PATIENT
  Age: 46 Year
  Sex: Female

DRUGS (2)
  1. LEPONEX / CLOZARIL [Suspect]
     Indication: SCHIZOPHRENIA
     Dosage: 12.5 MG, UNK
     Route: 048
     Dates: start: 20130313
  2. LEPONEX / CLOZARIL [Suspect]
     Dosage: 250 MG, UNK
     Route: 048

REACTIONS (3)
  - Femoral neck fracture [Recovered/Resolved]
  - Fall [Unknown]
  - Muscular weakness [Unknown]
